FAERS Safety Report 9640022 (Version 1)
Quarter: 2013Q4

REPORT INFORMATION
  Report Type: Spontaneous
  Country: US (occurrence: None)
  Receive Date: 20131022
  Receipt Date: 20131022
  Transmission Date: 20140711
  Serious: No
  Sender: FDA-Public Use
  Company Number: None

PATIENT
  Sex: 0

DRUGS (1)
  1. HYDROMORPHONE ISECURE SYRINGE [Suspect]
     Indication: PAIN
     Dates: start: 20130520, end: 20131021

REACTIONS (3)
  - Incorrect dose administered [None]
  - Product quality issue [None]
  - Incorrect drug administration rate [None]
